FAERS Safety Report 5750383-5 (Version None)
Quarter: 2008Q2

REPORT INFORMATION
  Report Type: 
  Country: None (occurrence: None)
  Receive Date: 20080528
  Receipt Date: 20080520
  Transmission Date: 20081010
  Serious: No
  Sender: FDA-Public Use
  Company Number: SE-BAXTER-2008BH004597

PATIENT
  Age: 65 Year
  Sex: Male

DRUGS (3)
  1. TISSUCOL/TISSEEL DUO STIM4 [Suspect]
     Indication: BRONCHOPLEURAL FISTULA
     Route: 050
     Dates: start: 20080201, end: 20080201
  2. TISSUCOL/TISSEEL DUO STIM4 [Suspect]
     Indication: OFF LABEL USE
     Route: 050
     Dates: start: 20080201, end: 20080201
  3. ANAESTHETICS, LOCAL [Concomitant]
     Dates: start: 20080201, end: 20080201

REACTIONS (2)
  - CEREBRAL ARTERY EMBOLISM [None]
  - CEREBROVASCULAR ACCIDENT [None]
